FAERS Safety Report 7828809-2 (Version None)
Quarter: 2011Q4

REPORT INFORMATION
  Report Type: 
  Country: None (occurrence: None)
  Receive Date: 20111019
  Receipt Date: 20111012
  Transmission Date: 20120403
  Serious: Yes (Death)
  Sender: FDA-Public Use
  Company Number: ABR_00233_2011

PATIENT
  Sex: Female
  Weight: 27.5 kg

DRUGS (13)
  1. THEOPHYLLINE [Concomitant]
  2. FUROSEMIDE [Concomitant]
  3. ERYTHROCIN [Suspect]
     Indication: BRONCHIOLITIS
     Dosage: 600 MG, (200 MG, 3 IN 1 D) ORAL
     Route: 048
     Dates: start: 19920101, end: 20060629
  4. DISOPYRAMIDE [Suspect]
     Indication: SUPRAVENTRICULAR TACHYCARDIA
     Dosage: 300 MG, (100 MG, 3 IN 1 D), ORAL
     Route: 048
     Dates: end: 20061010
  5. URSODIOL [Concomitant]
  6. ZOLPIDEM TARTRATE [Concomitant]
  7. CLARITHROMYCIN [Suspect]
     Indication: BRONCHIOLITIS
     Dosage: 200 MG, 600 MG (200 MG, 3 IN 1 D) ORAL (400 MG (200 MG, 2 IN 1 D), ORAL
     Route: 048
     Dates: start: 20060630, end: 20060918
  8. CLARITHROMYCIN [Suspect]
     Indication: BRONCHIOLITIS
     Dosage: 200 MG, 600 MG (200 MG, 3 IN 1 D) ORAL (400 MG (200 MG, 2 IN 1 D), ORAL
     Route: 048
     Dates: start: 20060919, end: 20061016
  9. RABEPRAZOLE SODIUM [Concomitant]
  10. RADIOTHERAPY [Concomitant]
  11. ACARDI (ACARDI) (NOT SPECIFIED) [Suspect]
     Indication: CARDIAC FAILURE CHRONIC
     Dosage: 5 MG, 5 MG (2.5 MG 2 IN 1 D), ORAL
     Route: 048
     Dates: end: 20061016
  12. TIOTROPIUM BROMIDE MONOHYDRATE [Concomitant]
  13. ISOSORBIDE DINITRATE [Concomitant]

REACTIONS (21)
  - CHRONIC RESPIRATORY FAILURE [None]
  - DISEASE PROGRESSION [None]
  - HYPERCAPNIA [None]
  - BLOOD POTASSIUM DECREASED [None]
  - PULMONARY GRANULOMA [None]
  - ARRHYTHMIA [None]
  - UNRESPONSIVE TO STIMULI [None]
  - DEPRESSED LEVEL OF CONSCIOUSNESS [None]
  - ARTERIOSCLEROSIS CORONARY ARTERY [None]
  - LUNG ABSCESS [None]
  - BLOOD PRESSURE DIASTOLIC DECREASED [None]
  - CHEST PAIN [None]
  - COR PULMONALE [None]
  - UTERINE CANCER [None]
  - PCO2 INCREASED [None]
  - VENTRICULAR TACHYCARDIA [None]
  - RESPIRATORY ARREST [None]
  - CARDIAC ARREST [None]
  - BRONCHIOLITIS [None]
  - ELECTROLYTE IMBALANCE [None]
  - CARDIAC DISORDER [None]
